FAERS Safety Report 12306311 (Version 2)
Quarter: 2016Q2

REPORT INFORMATION
  Report Type: Report from Study
  Country: BR (occurrence: BR)
  Receive Date: 20160426
  Receipt Date: 20160427
  Transmission Date: 20160815
  Serious: Yes (Other)
  Sender: FDA-Public Use
  Company Number: BR-JNJFOC-20160420546

PATIENT
  Sex: Female

DRUGS (3)
  1. SIMPONI [Suspect]
     Active Substance: GOLIMUMAB
     Indication: RHEUMATOID ARTHRITIS
     Route: 058
     Dates: start: 20141010
  2. TECNOMET [Concomitant]
     Active Substance: METHOTREXATE
     Route: 065
  3. HYDROCHLOROTHIAZIDE. [Concomitant]
     Active Substance: HYDROCHLOROTHIAZIDE
     Route: 065

REACTIONS (5)
  - Memory impairment [Unknown]
  - Diarrhoea [Unknown]
  - Spinal pain [Unknown]
  - Oropharyngeal pain [Unknown]
  - Pyrexia [Unknown]

NARRATIVE: CASE EVENT DATE: 2016
